FAERS Safety Report 21010430 (Version 2)
Quarter: 2022Q3

REPORT INFORMATION
  Report Type: Spontaneous
  Country: KR (occurrence: KR)
  Receive Date: 20220627
  Receipt Date: 20220719
  Transmission Date: 20221026
  Serious: Yes (Hospitalization, Other)
  Sender: FDA-Public Use
  Company Number: KR-PFIZER INC-PV202200004015

PATIENT
  Age: 6 Month
  Sex: Female

DRUGS (8)
  1. VANCOMYCIN HYDROCHLORIDE [Suspect]
     Active Substance: VANCOMYCIN HYDROCHLORIDE
     Indication: CNS ventriculitis
     Dosage: 15 MG/KG/DOSE EVERY 6 HOURS
     Route: 042
  2. VANCOMYCIN HYDROCHLORIDE [Suspect]
     Active Substance: VANCOMYCIN HYDROCHLORIDE
     Dosage: 21 MG/KG/DOSE EVERY 6 HOURS
     Route: 042
  3. VANCOMYCIN HYDROCHLORIDE [Suspect]
     Active Substance: VANCOMYCIN HYDROCHLORIDE
     Dosage: 11.5 MG/KG/DOSE EVERY 8 HOURS
     Route: 042
  4. VANCOMYCIN HYDROCHLORIDE [Suspect]
     Active Substance: VANCOMYCIN HYDROCHLORIDE
     Dosage: 15 MG/KG/DOSE EVERY 6 HOURS
     Route: 042
  5. VANCOMYCIN HYDROCHLORIDE [Suspect]
     Active Substance: VANCOMYCIN HYDROCHLORIDE
     Dosage: 18 MG/KG/DOSE EVERY 6 HOURS
     Route: 042
  6. VANCOMYCIN HYDROCHLORIDE [Suspect]
     Active Substance: VANCOMYCIN HYDROCHLORIDE
     Dosage: 10 MG, DAILY
     Route: 018
  7. VANCOMYCIN HYDROCHLORIDE [Suspect]
     Active Substance: VANCOMYCIN HYDROCHLORIDE
     Dosage: 5 MG, DAILY
     Route: 018
  8. CEFOTAXIME [Concomitant]
     Active Substance: CEFOTAXIME SODIUM
     Indication: CNS ventriculitis
     Dosage: 150 MG/KG, 4X/DAY
     Route: 042

REACTIONS (6)
  - Drug ineffective [Unknown]
  - Acute kidney injury [Unknown]
  - Hydrocephalus [Unknown]
  - Brain compression [Unknown]
  - Toxicity to various agents [Unknown]
  - Off label use [Unknown]
